FAERS Safety Report 9906797 (Version 1)
Quarter: 2014Q1

REPORT INFORMATION
  Report Type: Spontaneous
  Country: US (occurrence: US)
  Receive Date: 20140218
  Receipt Date: 20140218
  Transmission Date: 20141002
  Serious: No
  Sender: FDA-Public Use
  Company Number: US-GILEAD-2012-0053969

PATIENT
  Age: 70 Year
  Sex: Female

DRUGS (9)
  1. LETAIRIS [Suspect]
     Indication: PULMONARY HYPERTENSION
     Dosage: 5 MG, QD
     Route: 048
     Dates: start: 201201, end: 201203
  2. REMODULIN [Concomitant]
  3. LASIX                              /00032601/ [Concomitant]
  4. KLOR-CON [Concomitant]
  5. LOSARTAN [Concomitant]
  6. GABAPENTIN [Concomitant]
  7. COUMADIN                           /00014802/ [Concomitant]
  8. FAMOTIDINE [Concomitant]
  9. ONDANSETRON [Concomitant]
     Dosage: UNK
     Dates: start: 201201, end: 201203

REACTIONS (3)
  - Pruritus [Unknown]
  - Gastrointestinal disorder [Unknown]
  - Nausea [Unknown]
